FAERS Safety Report 18352567 (Version 1)
Quarter: 2020Q4

REPORT INFORMATION
  Report Type: Other
  Country: US (occurrence: US)
  Receive Date: 20201007
  Receipt Date: 20201007
  Transmission Date: 20210114
  Serious: Yes (Hospitalization)
  Sender: FDA-Public Use
  Company Number: US-ORCHID HEALTHCARE-2092490

PATIENT
  Age: 5 Day
  Sex: Female
  Weight: 2.93 kg

DRUGS (1)
  1. VENLAFAXINE HYDROCHLORIDE. [Suspect]
     Active Substance: VENLAFAXINE HYDROCHLORIDE
     Route: 065

REACTIONS (3)
  - Foetal exposure during pregnancy [Unknown]
  - Drug withdrawal syndrome neonatal [Recovered/Resolved]
  - Encephalopathy [Recovered/Resolved]
